FAERS Safety Report 9190814 (Version 1)
Quarter: 2013Q1

REPORT INFORMATION
  Report Type: Spontaneous
  Country: US (occurrence: US)
  Receive Date: 20130326
  Receipt Date: 20130326
  Transmission Date: 20140127
  Serious: Yes (Hospitalization)
  Sender: FDA-Public Use
  Company Number: US-ROCHE-1206368

PATIENT
  Age: 66 Year
  Sex: Female

DRUGS (10)
  1. XOLAIR [Suspect]
     Indication: ASTHMA
     Dosage: 1 DF
     Route: 058
     Dates: start: 2011
  2. CLARITYNE [Concomitant]
  3. AIROMIR [Concomitant]
  4. TERBUTALIN [Concomitant]
  5. SERETIDE [Concomitant]
  6. TAHOR [Concomitant]
  7. PLAVIX [Concomitant]
  8. MOPRAL (FRANCE) [Concomitant]
     Route: 065
  9. NOVONORM [Concomitant]
  10. PYOSTACINE [Concomitant]
     Route: 065
     Dates: start: 20110106

REACTIONS (2)
  - Cerebral artery thrombosis [Recovered/Resolved with Sequelae]
  - Ischaemic stroke [Recovered/Resolved with Sequelae]
